FAERS Safety Report 10285859 (Version 1)
Quarter: 2014Q3

REPORT INFORMATION
  Report Type: Spontaneous
  Country: US (occurrence: US)
  Receive Date: 20140709
  Receipt Date: 20140709
  Transmission Date: 20150326
  Serious: Yes (Other)
  Sender: FDA-Public Use
  Company Number: US-AMGEN-USASP2014050228

PATIENT
  Age: 72 Year
  Sex: Female

DRUGS (3)
  1. ZYRTEC [Concomitant]
     Active Substance: CETIRIZINE HYDROCHLORIDE
     Indication: HYPERSENSITIVITY
     Dosage: UNK UNK, AS NECESSARY
  2. PROLIA [Suspect]
     Active Substance: DENOSUMAB
     Indication: OSTEOPOROSIS POSTMENOPAUSAL
     Dosage: 60 MG, UNK
     Route: 065
     Dates: start: 2013
  3. BABY ASPIRIN [Concomitant]
     Active Substance: ASPIRIN
     Dosage: 81 MG, QD

REACTIONS (17)
  - Haemorrhage [Unknown]
  - Hypoacusis [Recovered/Resolved]
  - Hypersensitivity [Unknown]
  - Fatigue [Not Recovered/Not Resolved]
  - Asthenia [Not Recovered/Not Resolved]
  - Myalgia [Unknown]
  - Rhinorrhoea [Not Recovered/Not Resolved]
  - Blood blister [Unknown]
  - Dyspnoea [Unknown]
  - Cough [Unknown]
  - Animal bite [Unknown]
  - Urinary incontinence [Unknown]
  - Blood viscosity decreased [Unknown]
  - Ear congestion [Recovered/Resolved]
  - Mobility decreased [Unknown]
  - Abdominal discomfort [Unknown]
  - Tooth loss [Unknown]
